FAERS Safety Report 4317713-2 (Version None)
Quarter: 2004Q1

REPORT INFORMATION
  Report Type: 
  Country: None (occurrence: None)
  Receive Date: 20040315
  Receipt Date: 20040202
  Transmission Date: 20041129
  Serious: Yes (Life-Threatening, Hospitalization)
  Sender: FDA-Public Use
  Company Number: PHRM2004FR00731

PATIENT
  Age: 42 Year
  Sex: Female

DRUGS (1)
  1. COTAREG [Suspect]
     Indication: HYPERTENSION
     Route: 048
     Dates: end: 20040202

REACTIONS (3)
  - DRUG EXPOSURE DURING PREGNANCY [None]
  - HAEMOGLOBIN DECREASED [None]
  - OLIGOHYDRAMNIOS [None]
